FAERS Safety Report 24531813 (Version 1)
Quarter: 2024Q4

REPORT INFORMATION
  Report Type: Spontaneous
  Country: IT (occurrence: IT)
  Receive Date: 20241022
  Receipt Date: 20241022
  Transmission Date: 20250114
  Serious: Yes (Other)
  Sender: CHEPLAPHARM
  Company Number: IT-CHEPLA-2024013312

PATIENT
  Age: 71 Year
  Sex: Male

DRUGS (4)
  1. CAPECITABINE [Suspect]
     Active Substance: CAPECITABINE
     Indication: Colorectal cancer
     Dates: start: 201910
  2. OXALIPLATIN [Suspect]
     Active Substance: OXALIPLATIN
     Indication: Colorectal cancer
     Dates: start: 201910
  3. FLUOROURACIL [Suspect]
     Active Substance: FLUOROURACIL
     Indication: Colorectal cancer
     Dates: start: 201910
  4. EXEMESTANE [Suspect]
     Active Substance: EXEMESTANE
     Dates: start: 202109

REACTIONS (5)
  - Acute promyelocytic leukaemia [Unknown]
  - Breast cancer [Unknown]
  - Atrial fibrillation [Unknown]
  - Cardiac failure [Unknown]
  - Renal failure [Unknown]

NARRATIVE: CASE EVENT DATE: 20210901
